FAERS Safety Report 5255421-4 (Version None)
Quarter: 2007Q1

REPORT INFORMATION
  Report Type: 
  Country: None (occurrence: None)
  Receive Date: 20070228
  Receipt Date: 20070215
  Transmission Date: 20070707
  Serious: Yes (Death, Life-Threatening, Hospitalization)
  Sender: FDA-Public Use
  Company Number: 2007-00231

PATIENT
  Age: 53 Year
  Sex: Male

DRUGS (22)
  1. VELCADE [Suspect]
     Indication: MULTIPLE MYELOMA
     Dosage: 1.30 MG/M2
     Dates: start: 20070117, end: 20070123
  2. DEXAMETHASONE [Suspect]
     Indication: MULTIPLE MYELOMA
     Dosage: 20.00 MG, IV DRIP
     Route: 041
     Dates: start: 20070117, end: 20070131
  3. MORPHINE [Suspect]
     Indication: DRUG USE FOR UNKNOWN INDICATION
     Dates: start: 20070109, end: 20070210
  4. ALLOPURINOL [Concomitant]
  5. DIFLUCAN [Concomitant]
  6. MUCOSTA (REBAMIPIDE) [Concomitant]
  7. SILECE (FLUNITRAZEPAM) [Concomitant]
  8. PURSENNID (SENNA LEAF) [Concomitant]
  9. CIPROXAN (CIPROFLOXACIN HYDROCHLORIDE) [Concomitant]
  10. BAKTAR (SULFAMETHOXAZOLE, TRIMETHOPRIM) [Concomitant]
  11. SOLU-CORTEF [Concomitant]
  12. OMEGA-3 (OMEGA-3 TRIGLYCERIDES) [Concomitant]
  13. MEROPEN (MEROPENEM) [Concomitant]
  14. TARGOCID [Concomitant]
  15. ACYCLOVIR [Concomitant]
  16. FUNGUARD (CLOTRIMAZOLE) [Concomitant]
  17. NEUTROGIN [Concomitant]
  18. AMIKACIN SULFATE [Concomitant]
  19. RED BLOOD CELLS [Concomitant]
  20. PLATELETS [Concomitant]
  21. IMMUNE GLOBULIN INTRAVENOUS (HUMAN) [Concomitant]
  22. ALBUMIN (HUMAN) [Concomitant]

REACTIONS (28)
  - ANAEMIA [None]
  - ATRIAL SEPTAL DEFECT [None]
  - BLADDER DISORDER [None]
  - CARDIOMEGALY [None]
  - DELIRIUM [None]
  - DEPRESSED LEVEL OF CONSCIOUSNESS [None]
  - DIALYSIS [None]
  - DIARRHOEA [None]
  - DISSEMINATED INTRAVASCULAR COAGULATION [None]
  - DYSPHONIA [None]
  - GASTRIC DISORDER [None]
  - GASTROINTESTINAL HAEMORRHAGE [None]
  - HYPERURICAEMIA [None]
  - HYPOAESTHESIA [None]
  - MULTIPLE MYELOMA [None]
  - MUSCULOSKELETAL DISORDER [None]
  - NEUTROPENIA [None]
  - PNEUMONIA [None]
  - PNEUMONIA BACTERIAL [None]
  - PSEUDOMONAS INFECTION [None]
  - RENAL AMYLOIDOSIS [None]
  - RENAL FAILURE ACUTE [None]
  - SEPTIC SHOCK [None]
  - SPUTUM CULTURE POSITIVE [None]
  - TUMOUR LYSIS SYNDROME [None]
  - URINARY RETENTION [None]
  - VENTRICULAR EXTRASYSTOLES [None]
  - WHITE BLOOD CELL COUNT DECREASED [None]
